FAERS Safety Report 7930013-4 (Version None)
Quarter: 2011Q4

REPORT INFORMATION
  Report Type: 
  Country: None (occurrence: None)
  Receive Date: 20111121
  Receipt Date: 20111115
  Transmission Date: 20120403
  Serious: Yes (Other)
  Sender: FDA-Public Use
  Company Number: US-ABBOTT-11P-163-0844631-00

PATIENT
  Sex: Male

DRUGS (8)
  1. MOBIC [Concomitant]
     Indication: PRODUCT USED FOR UNKNOWN INDICATION
  2. FLEXERIL [Concomitant]
     Indication: PRODUCT USED FOR UNKNOWN INDICATION
  3. HUMIRA [Suspect]
     Indication: PSORIASIS
     Dates: start: 20071201, end: 20110601
  4. HUMIRA [Suspect]
     Indication: PSORIATIC ARTHROPATHY
     Dates: end: 20060101
  5. DIOVAN [Concomitant]
     Indication: BLOOD PRESSURE INCREASED
     Dosage: 1 IN 1 DAY, 160/125MG DAILY
     Route: 048
  6. RANTIDINE [Concomitant]
     Indication: GASTROOESOPHAGEAL REFLUX DISEASE
     Route: 048
  7. TYLENOL W/ CODEINE NO. 4 [Concomitant]
     Indication: PRODUCT USED FOR UNKNOWN INDICATION
  8. MOBRA [Concomitant]
     Indication: PRODUCT USED FOR UNKNOWN INDICATION

REACTIONS (5)
  - NEOPLASM PROGRESSION [None]
  - PROCEDURAL PAIN [None]
  - DEPRESSION [None]
  - RENAL NEOPLASM [None]
  - ARTHRALGIA [None]
